FAERS Safety Report 8291217-7 (Version None)
Quarter: 2012Q2

REPORT INFORMATION
  Report Type: 
  Country: None (occurrence: None)
  Receive Date: 20120417
  Receipt Date: 20120411
  Transmission Date: 20120825
  Serious: Yes (Other)
  Sender: FDA-Public Use
  Company Number: US-BAYER-2012-036028

PATIENT
  Sex: Female

DRUGS (3)
  1. ALEVE (CAPLET) [Suspect]
     Dosage: 2 DF, UNK
     Route: 048
  2. ACETAMINOPHEN [Concomitant]
     Dosage: 2 DF, UNK
  3. MOTRIN [Concomitant]

REACTIONS (1)
  - GASTRIC DISORDER [None]
